FAERS Safety Report 24376445 (Version 1)
Quarter: 2024Q3

REPORT INFORMATION
  Report Type: Spontaneous
  Country: GB (occurrence: GB)
  Receive Date: 20240930
  Receipt Date: 20240930
  Transmission Date: 20241017
  Serious: Yes (Hospitalization, Other)
  Sender: HIKMA
  Company Number: None

PATIENT
  Age: 84 Year
  Sex: Female

DRUGS (2)
  1. VANCOMYCIN [Suspect]
     Active Substance: VANCOMYCIN
     Indication: Medical device site joint pain
     Dosage: 900 MILLIGRAM, BID
     Route: 042
     Dates: start: 20240818, end: 20240909
  2. LINEZOLID [Concomitant]
     Active Substance: LINEZOLID
     Indication: Infection
     Dosage: UNKNOWN
     Route: 065
     Dates: start: 20240909, end: 20240911

REACTIONS (7)
  - Rash [Recovering/Resolving]
  - Enanthema [Unknown]
  - Rash vesicular [Unknown]
  - Pharyngeal haemorrhage [Unknown]
  - Stevens-Johnson syndrome [Unknown]
  - Rash morbilliform [Unknown]
  - Rash pruritic [Unknown]

NARRATIVE: CASE EVENT DATE: 20240909
